FAERS Safety Report 24342182 (Version 1)
Quarter: 2024Q3

REPORT INFORMATION
  Report Type: Spontaneous
  Country: US (occurrence: US)
  Receive Date: 20240920
  Receipt Date: 20240920
  Transmission Date: 20241016
  Serious: No
  Sender: BAUSCH AND LOMB
  Company Number: US-BAUSCHBL-2024BNL033196

PATIENT
  Age: 71 Year
  Sex: Male

DRUGS (2)
  1. DORZOLAMIDE HYDROCHLORIDE [Suspect]
     Active Substance: DORZOLAMIDE HYDROCHLORIDE
     Indication: Glaucoma
     Dosage: 1 DROP IN RIGHT EYE (STARTED ABOVE 10 YEARS AGO).
     Route: 047
     Dates: start: 2014, end: 20240905
  2. ROCKLATAN [Concomitant]
     Active Substance: LATANOPROST\NETARSUDIL MESYLATE
     Indication: Product used for unknown indication
     Dosage: IN EACH EYE
     Route: 047

REACTIONS (5)
  - Periorbital swelling [Recovering/Resolving]
  - Ocular hyperaemia [Recovering/Resolving]
  - Eyelid margin crusting [Recovering/Resolving]
  - Eye pain [Recovering/Resolving]
  - Product quality issue [Unknown]

NARRATIVE: CASE EVENT DATE: 20240101
